FAERS Safety Report 19321601 (Version 1)
Quarter: 2021Q2

REPORT INFORMATION
  Report Type: Spontaneous
  Country: US (occurrence: US)
  Receive Date: 20210528
  Receipt Date: 20210528
  Transmission Date: 20210717
  Serious: Yes (Other)
  Sender: FDA-Public Use
  Company Number: US-JNJFOC-20210542201

PATIENT
  Sex: Female

DRUGS (3)
  1. MODERNA COVID?19 VACCINE [Interacting]
     Active Substance: CX-024414
     Route: 065
     Dates: start: 202102
  2. REMICADE [Suspect]
     Active Substance: INFLIXIMAB
     Indication: CROHN^S DISEASE
     Route: 042
  3. MODERNA COVID?19 VACCINE [Interacting]
     Active Substance: CX-024414
     Route: 065
     Dates: start: 202101

REACTIONS (2)
  - Vaccination failure [Unknown]
  - Drug interaction [Unknown]
